FAERS Safety Report 19457543 (Version 1)
Quarter: 2021Q2

REPORT INFORMATION
  Report Type: Report from Study
  Country: JP (occurrence: JP)
  Receive Date: 20210624
  Receipt Date: 20210624
  Transmission Date: 20210717
  Serious: Yes (Other)
  Sender: FDA-Public Use
  Company Number: JP-ROCHE-2831921

PATIENT
  Age: 70 Year
  Sex: Female
  Weight: 53.5 kg

DRUGS (22)
  1. LEVOFOLINATE CALCIUM [Concomitant]
     Active Substance: LEVOLEUCOVORIN CALCIUM
     Dosage: 310 MILLIGRAM, ONCE/2WEEKS
     Route: 041
     Dates: start: 20210422
  2. 5?FU [FLUOROURACIL] [Suspect]
     Active Substance: FLUOROURACIL
     Dosage: 3723 MILLIGRAM, ONCE/2WEEKS
     Route: 041
     Dates: start: 20210422
  3. DEXAMETHASONE SODIUM PHOSPHATE. [Concomitant]
     Active Substance: DEXAMETHASONE SODIUM PHOSPHATE
     Dosage: 6.6MG,ONCE IN2WEEK
     Route: 042
     Dates: start: 20210422
  4. APREPITANT. [Concomitant]
     Active Substance: APREPITANT
     Dosage: 80MG,ONCE IN2WEEK
     Route: 048
     Dates: start: 20210423
  5. OXALIPLATIN. [Suspect]
     Active Substance: OXALIPLATIN
     Indication: RECTAL ADENOCARCINOMA
     Dosage: 132MG,ONCE IN1DAY
     Route: 041
     Dates: start: 20210331, end: 20210331
  6. OXALIPLATIN. [Suspect]
     Active Substance: OXALIPLATIN
     Dosage: 100 MILLIGRAM, ONCE/2WEEKS
     Route: 041
     Dates: start: 20210422
  7. DEXAMETHASONE. [Concomitant]
     Active Substance: DEXAMETHASONE
     Dosage: 8MG,ONCE IN2WEEK
     Route: 048
     Dates: start: 20210423
  8. IRINOTECAN HYDROCHLORIDE. [Suspect]
     Active Substance: IRINOTECAN HYDROCHLORIDE
     Indication: RECTAL ADENOCARCINOMA
     Dosage: 256MG,ONCE IN1DAY
     Route: 041
     Dates: start: 20210331, end: 20210331
  9. 5?FU [FLUOROURACIL] [Suspect]
     Active Substance: FLUOROURACIL
     Indication: RECTAL ADENOCARCINOMA
     Dosage: ,ONCE IN1DAY
     Route: 040
     Dates: start: 20210331, end: 20210402
  10. PALONOSETRON HYDROCHLORIDE. [Concomitant]
     Active Substance: PALONOSETRON HYDROCHLORIDE
     Dosage: 0.75MG,ONCE IN1DAY
     Route: 042
     Dates: start: 20210331, end: 20210331
  11. APREPITANT. [Concomitant]
     Active Substance: APREPITANT
     Dosage: 125MG,ONCE IN2WEEK
     Route: 048
     Dates: start: 20210422
  12. BEVACIZUMAB. [Suspect]
     Active Substance: BEVACIZUMAB
     Dosage: UNK UNK, ONCE/2WEEKS
     Route: 041
     Dates: start: 20210422
  13. IRINOTECAN HYDROCHLORIDE. [Suspect]
     Active Substance: IRINOTECAN HYDROCHLORIDE
     Dosage: 194 UNK
     Route: 041
     Dates: start: 20210422
  14. 5?FU [FLUOROURACIL] [Suspect]
     Active Substance: FLUOROURACIL
     Dosage: ,ONCE IN2WEEK
     Route: 040
     Dates: start: 20210422
  15. DEXAMETHASONE. [Concomitant]
     Active Substance: DEXAMETHASONE
     Dosage: 8MG,ONCE IN1DAY
     Route: 048
     Dates: start: 20210401, end: 20210403
  16. BEVACIZUMAB. [Suspect]
     Active Substance: BEVACIZUMAB
     Indication: RECTAL ADENOCARCINOMA
     Dosage: 267MG,ONCE IN1DAY
     Route: 041
     Dates: start: 20210331, end: 20210331
  17. 5?FU [FLUOROURACIL] [Suspect]
     Active Substance: FLUOROURACIL
     Dosage: 4969MG,ONCE IN1DAY
     Route: 041
     Dates: start: 20210331, end: 20210402
  18. LEVOFOLINATE CALCIUM [Concomitant]
     Active Substance: LEVOLEUCOVORIN CALCIUM
     Indication: RECTAL ADENOCARCINOMA
     Dosage: 310MG,ONCE IN1DAY
     Route: 041
     Dates: start: 20210331, end: 20210331
  19. PALONOSETRON HYDROCHLORIDE. [Concomitant]
     Active Substance: PALONOSETRON HYDROCHLORIDE
     Dosage: 0.75MG,ONCE IN2WEEK
     Route: 042
     Dates: start: 20210422
  20. DEXAMETHASONE SODIUM PHOSPHATE. [Concomitant]
     Active Substance: DEXAMETHASONE SODIUM PHOSPHATE
     Dosage: 6.6MG,ONCE IN1DAY
     Route: 042
     Dates: start: 20210331, end: 20210331
  21. APREPITANT. [Concomitant]
     Active Substance: APREPITANT
     Dosage: 125MG,ONCE IN1DAY
     Route: 048
     Dates: start: 20210331, end: 20210331
  22. APREPITANT. [Concomitant]
     Active Substance: APREPITANT
     Dosage: 80MG,ONCE IN1DAY
     Route: 048
     Dates: start: 20210401, end: 20210402

REACTIONS (6)
  - Febrile neutropenia [Recovered/Resolved]
  - Hypertension [Unknown]
  - Hypokalaemia [Recovered/Resolved]
  - White blood cell count decreased [Unknown]
  - Anaemia [Recovered/Resolved]
  - Neutrophil count decreased [Unknown]

NARRATIVE: CASE EVENT DATE: 20210413
